FAERS Safety Report 17676666 (Version 2)
Quarter: 2023Q1

REPORT INFORMATION
  Report Type: Spontaneous
  Country: CA (occurrence: CA)
  Receive Date: 20200416
  Receipt Date: 20230301
  Transmission Date: 20230417
  Serious: Yes (Life-Threatening, Hospitalization, Other)
  Sender: FDA-Public Use
  Company Number: CA-009507513-2004CAN004390

PATIENT
  Age: 74 Year
  Sex: Male

DRUGS (1)
  1. KEYTRUDA [Suspect]
     Active Substance: PEMBROLIZUMAB
     Indication: Adenocarcinoma of colon
     Dosage: 100 MILLIGRAM, 1EVERY 3 WEEKS
     Route: 042
     Dates: start: 20190531, end: 20190821

REACTIONS (3)
  - Biliary obstruction [Unknown]
  - Biliary catheter insertion [Unknown]
  - Brain neoplasm [Unknown]

NARRATIVE: CASE EVENT DATE: 20190904
